FAERS Safety Report 9863536 (Version 2)
Quarter: 2014Q1

REPORT INFORMATION
  Report Type: Spontaneous
  Country: US (occurrence: US)
  Receive Date: 20140203
  Receipt Date: 20140303
  Transmission Date: 20141002
  Serious: Yes (Other)
  Sender: FDA-Public Use
  Company Number: US-PFIZER INC-2014031131

PATIENT
  Age: 66 Year
  Sex: Female
  Weight: 84 kg

DRUGS (2)
  1. LYRICA [Suspect]
     Dosage: 75 MG, 3X/DAY
     Dates: start: 2013
  2. OMEPRAZOLE [Concomitant]
     Dosage: 20 MG, 2X/DAY

REACTIONS (8)
  - Aphagia [Unknown]
  - Weight increased [Unknown]
  - White blood cell count increased [Unknown]
  - Vomiting [Unknown]
  - Emotional disorder [Unknown]
  - Crying [Unknown]
  - Asthenia [Unknown]
  - Malaise [Unknown]
